FAERS Safety Report 20059652 (Version 2)
Quarter: 2021Q4

REPORT INFORMATION
  Report Type: Spontaneous
  Country: US (occurrence: None)
  Receive Date: 20211111
  Receipt Date: 20211230
  Transmission Date: 20220303
  Serious: No
  Sender: FDA-Public Use
  Company Number: 2021A787321

PATIENT
  Sex: Female
  Weight: 81.6 kg

DRUGS (2)
  1. BYDUREON BCISE [Suspect]
     Active Substance: EXENATIDE
     Indication: Blood glucose abnormal
     Dosage: 2.0MG UNKNOWN
     Route: 058
  2. LANTUS [Concomitant]
     Active Substance: INSULIN GLARGINE
     Dosage: 25 UNITS

REACTIONS (5)
  - Blood glucose increased [Unknown]
  - Tremor [Unknown]
  - Abdominal distension [Unknown]
  - Weight decreased [Unknown]
  - Device delivery system issue [Unknown]
